FAERS Safety Report 25672047 (Version 1)
Quarter: 2025Q3

REPORT INFORMATION
  Report Type: Report from Study
  Country: US (occurrence: US)
  Receive Date: 20250812
  Receipt Date: 20250812
  Transmission Date: 20251020
  Serious: No
  Sender: MALLINCKRODT
  Company Number: US-MALLINCKRODT-MNK202504915

PATIENT
  Sex: Female

DRUGS (1)
  1. CORTICOTROPIN [Suspect]
     Active Substance: CORTICOTROPIN
     Indication: Neurotrophic keratopathy
     Dates: start: 202309, end: 20231101

REACTIONS (3)
  - Bone density abnormal [Unknown]
  - Body height decreased [Not Recovered/Not Resolved]
  - Arthralgia [Unknown]
